FAERS Safety Report 12894782 (Version 1)
Quarter: 2016Q4

REPORT INFORMATION
  Report Type: Spontaneous
  Country: FR (occurrence: FR)
  Receive Date: 20161028
  Receipt Date: 20161028
  Transmission Date: 20170207
  Serious: Yes (Hospitalization, Other)
  Sender: FDA-Public Use
  Company Number: FR-ELI_LILLY_AND_COMPANY-FR201610007070

PATIENT
  Sex: Male

DRUGS (4)
  1. LOXAPAC                            /00401801/ [Suspect]
     Active Substance: LOXAPINE SUCCINATE
     Indication: PRODUCT USED FOR UNKNOWN INDICATION
     Dosage: UNK, UNKNOWN
     Route: 048
     Dates: end: 20160912
  2. ZYPREXA [Suspect]
     Active Substance: OLANZAPINE
     Dosage: 2 DF, QD
     Route: 048
     Dates: start: 20160905, end: 20160910
  3. ZYPREXA [Suspect]
     Active Substance: OLANZAPINE
     Indication: PRODUCT USED FOR UNKNOWN INDICATION
     Dosage: 1 DF, QD
     Route: 048
     Dates: end: 20160905
  4. DIPIPERON [Suspect]
     Active Substance: PIPAMPERONE
     Indication: PRODUCT USED FOR UNKNOWN INDICATION
     Dosage: UNK, UNKNOWN
     Route: 048
     Dates: start: 20160911, end: 20160912

REACTIONS (7)
  - Neuroleptic malignant syndrome [Recovered/Resolved]
  - Eating disorder [Unknown]
  - Facial paralysis [Unknown]
  - Pupils unequal [Unknown]
  - Blood lactic acid increased [Unknown]
  - C-reactive protein increased [Unknown]
  - Schizophrenia [Unknown]
